FAERS Safety Report 13661697 (Version 1)
Quarter: 2017Q2

REPORT INFORMATION
  Report Type: Spontaneous
  Country: GB (occurrence: GB)
  Receive Date: 20170616
  Receipt Date: 20170616
  Transmission Date: 20170830
  Serious: Yes (Hospitalization, Disabling)
  Sender: FDA-Public Use
  Company Number: GB-MYLANLABS-2017M1034975

PATIENT

DRUGS (3)
  1. MULTIVITAMIN [Concomitant]
     Active Substance: VITAMINS
  2. ESCITALOPRAM [Suspect]
     Active Substance: ESCITALOPRAM OXALATE
     Indication: DEPRESSION
     Route: 048
     Dates: start: 20170525, end: 20170525
  3. OMEGA-3 FATTY ACIDS [Concomitant]
     Active Substance: OMEGA-3 FATTY ACIDS

REACTIONS (8)
  - Inappropriate affect [Unknown]
  - Speech disorder [Unknown]
  - Nausea [Unknown]
  - Mydriasis [Unknown]
  - Malaise [Unknown]
  - Dizziness [Unknown]
  - Migraine [Unknown]
  - Muscle contractions involuntary [Not Recovered/Not Resolved]

NARRATIVE: CASE EVENT DATE: 20170525
